FAERS Safety Report 5200327-X (Version None)
Quarter: 2006Q4

REPORT INFORMATION
  Report Type: 
  Country: None (occurrence: None)
  Receive Date: 20061016
  Receipt Date: 20060913
  Transmission Date: 20070319
  Serious: No
  Sender: FDA-Public Use
  Company Number: 2006SP003273

PATIENT
  Age: 79 Year
  Sex: Male
  Weight: 99.7913 kg

DRUGS (6)
  1. LUNESTA [Suspect]
     Indication: INSOMNIA
     Dosage: 2 MG; ORAL
     Route: 048
     Dates: start: 20060801, end: 20060901
  2. LUNESTA [Suspect]
     Indication: INSOMNIA
     Dosage: 2 MG; ORAL
     Route: 048
     Dates: start: 20060901
  3. ATENOLOL [Concomitant]
  4. LANOXIN [Concomitant]
  5. POTASSIUM CHLORIDE [Concomitant]
  6. FUROSEMIDE [Concomitant]

REACTIONS (2)
  - DRUG INEFFECTIVE [None]
  - MIDDLE INSOMNIA [None]
